FAERS Safety Report 4746431-1 (Version None)
Quarter: 2005Q3

REPORT INFORMATION
  Report Type: 
  Country: None (occurrence: None)
  Receive Date: 20050815
  Receipt Date: 20050803
  Transmission Date: 20060218
  Serious: Yes (Other)
  Sender: FDA-Public Use
  Company Number: EWC050745139

PATIENT
  Age: 68 Year
  Sex: Male

DRUGS (6)
  1. CYMBALTA [Suspect]
     Indication: DEPRESSION
     Dosage: 60 MG DAY
     Route: 048
     Dates: start: 20050516, end: 20050628
  2. CYMBALTA [Suspect]
     Indication: PAIN
     Dosage: 60 MG DAY
     Route: 048
     Dates: start: 20050516, end: 20050628
  3. CYMBALTA [Suspect]
     Indication: PSYCHOSOMATIC DISEASE
     Dosage: 60 MG DAY
     Route: 048
     Dates: start: 20050516, end: 20050628
  4. ANTIBIOTIC [Concomitant]
  5. RISPOLEPT             (RISPERIDONE) [Concomitant]
  6. LERIVON (MIANSERIN HYDROCHLORIDE) [Concomitant]

REACTIONS (5)
  - ASTHENIA [None]
  - BLOOD PRESSURE DECREASED [None]
  - BRONCHITIS [None]
  - DIZZINESS [None]
  - FALL [None]
